FAERS Safety Report 21013536 (Version 1)
Quarter: 2022Q2

REPORT INFORMATION
  Report Type: Spontaneous
  Country: US (occurrence: US)
  Receive Date: 20220627
  Receipt Date: 20220627
  Transmission Date: 20220720
  Serious: No
  Sender: FDA-Public Use
  Company Number: US-SA-SAC20220620001913

PATIENT
  Age: 33 Year
  Sex: Female

DRUGS (1)
  1. DUPIXENT [Suspect]
     Active Substance: DUPILUMAB
     Dosage: DOSE OR AMOUNT- 300 MG/2 ML FREQUENCY-OTHER
     Route: 058

REACTIONS (1)
  - Product dose omission in error [Unknown]

NARRATIVE: CASE EVENT DATE: 20220317
